FAERS Safety Report 23078309 (Version 5)
Quarter: 2023Q4

REPORT INFORMATION
  Report Type: Report from Study
  Country: ES (occurrence: ES)
  Receive Date: 20231018
  Receipt Date: 20231130
  Transmission Date: 20240110
  Serious: Yes (Death, Life-Threatening)
  Sender: FDA-Public Use
  Company Number: ES-ABBVIE-5454689

PATIENT
  Sex: Female
  Weight: 67 kg

DRUGS (2)
  1. CARBIDOPA\LEVODOPA [Suspect]
     Active Substance: CARBIDOPA\LEVODOPA
     Indication: Parkinson^s disease
     Dosage: CHANGED THE DOSE ON THE CONTINUOUS INFUSION PUMP?FREQUENCY TEXT: 24 HOURS
     Route: 050
     Dates: start: 2023
  2. CARBIDOPA\LEVODOPA [Suspect]
     Active Substance: CARBIDOPA\LEVODOPA
     Dosage: FREQUENCY TEXT: 24 HOURS?LAST ADMIN DATE  2023
     Route: 050
     Dates: start: 20220525

REACTIONS (3)
  - Colon cancer metastatic [Fatal]
  - Muscle rigidity [Unknown]
  - Pain [Not Recovered/Not Resolved]

NARRATIVE: CASE EVENT DATE: 20230101
